FAERS Safety Report 16526938 (Version 1)
Quarter: 2019Q3

REPORT INFORMATION
  Report Type: Report from Study
  Country: IT (occurrence: IT)
  Receive Date: 20190703
  Receipt Date: 20190703
  Transmission Date: 20191004
  Serious: Yes (Hospitalization)
  Sender: FDA-Public Use
  Company Number: IT-MYLANLABS-2019M1061835

PATIENT
  Age: 78 Year
  Sex: Female
  Weight: 48 kg

DRUGS (4)
  1. DAFLON                             /00426001/ [Concomitant]
     Active Substance: DIOSMIN
     Dosage: UNK
  2. CACIT                              /00944201/ [Concomitant]
     Active Substance: CALCIUM CARBONATE\CHOLECALCIFEROL
     Dosage: UNK
  3. ALENDRONIC ACID [Concomitant]
     Active Substance: ALENDRONIC ACID
     Dosage: UNK
  4. DICLOFENAC [Suspect]
     Active Substance: DICLOFENAC
     Indication: ARTHRALGIA
     Dosage: 1 DOSAGE FORM, QD
     Route: 048
     Dates: start: 20170209, end: 20170309

REACTIONS (3)
  - Cerebral haemorrhage [Recovering/Resolving]
  - Hemiparesis [Recovering/Resolving]
  - Hemianopia [Recovering/Resolving]

NARRATIVE: CASE EVENT DATE: 20170308
